FAERS Safety Report 7389541-5 (Version None)
Quarter: 2011Q2

REPORT INFORMATION
  Report Type: 
  Country: None (occurrence: None)
  Receive Date: 20110401
  Receipt Date: 20110318
  Transmission Date: 20111010
  Serious: Yes (Other)
  Sender: FDA-Public Use
  Company Number: PHHY2011RU22722

PATIENT
  Age: 50 Year
  Sex: Female

DRUGS (1)
  1. RASILEZ [Suspect]
     Indication: HYPERTENSION
     Dosage: 150 MG, DAILY
     Dates: start: 20091101

REACTIONS (4)
  - BLOOD PRESSURE SYSTOLIC INCREASED [None]
  - EYELID BLEEDING [None]
  - DIPLOPIA [None]
  - HEADACHE [None]
